FAERS Safety Report 14947478 (Version 1)
Quarter: 2018Q2

REPORT INFORMATION
  Report Type: Spontaneous
  Country: US (occurrence: US)
  Receive Date: 20180508
  Receipt Date: 20180508
  Transmission Date: 20180711
  Serious: Yes (Life-Threatening, Hospitalization)
  Sender: FDA-Public Use
  Company Number: None

PATIENT
  Age: 44 Year
  Sex: Female
  Weight: 86.1 kg

DRUGS (6)
  1. GABAPENTIN. [Concomitant]
     Active Substance: GABAPENTIN
     Dates: start: 20110821, end: 20180508
  2. BACLOFEN. [Concomitant]
     Active Substance: BACLOFEN
     Dates: start: 20110812, end: 20180508
  3. ZOLPIDEM [Concomitant]
     Active Substance: ZOLPIDEM\ZOLPIDEM TARTRATE
     Dates: start: 20101018, end: 20180508
  4. SERTRALINE [Concomitant]
     Active Substance: SERTRALINE HYDROCHLORIDE
     Dates: start: 20110314, end: 20180508
  5. MODAFENIL [Concomitant]
     Dates: start: 20101019, end: 20180504
  6. NATALIZUMAB [Suspect]
     Active Substance: NATALIZUMAB
     Indication: RELAPSING-REMITTING MULTIPLE SCLEROSIS
     Dosage: ?          OTHER FREQUENCY:EVERY 4 WEEKS;?
     Route: 042
     Dates: start: 20111118, end: 20180503

REACTIONS (2)
  - B precursor type acute leukaemia [None]
  - Acute lymphocytic leukaemia [None]

NARRATIVE: CASE EVENT DATE: 20180504
